FAERS Safety Report 16989417 (Version 1)
Quarter: 2019Q4

REPORT INFORMATION
  Report Type: Spontaneous
  Country: US (occurrence: US)
  Receive Date: 20190919
  Receipt Date: 20190919
  Transmission Date: 20200122
  Serious: No
  Sender: FDA-Public Use
  Company Number: None

PATIENT
  Age: 88 Year
  Sex: Male

DRUGS (1)
  1. VYNDAQEL [Suspect]
     Active Substance: TAFAMIDIS MEGLUMINE
     Indication: ESSENTIAL HYPERTENSION
     Route: 048
     Dates: start: 20190813

REACTIONS (2)
  - Diarrhoea [None]
  - Hallucination [None]

NARRATIVE: CASE EVENT DATE: 20190813
